FAERS Safety Report 6099409-2 (Version None)
Quarter: 2009Q1

REPORT INFORMATION
  Report Type: 
  Country: None (occurrence: None)
  Receive Date: 20090226
  Receipt Date: 20090226
  Transmission Date: 20090719
  Serious: Yes (Hospitalization)
  Sender: FDA-Public Use
  Company Number: None

PATIENT
  Age: 33 Year
  Sex: Female
  Weight: 55.3388 kg

DRUGS (4)
  1. OXALIPLATIN [Suspect]
     Indication: PROSTATE CANCER
     Dosage: 130 MG/M2 Q 21 DAYS -DAY 1 IV
     Route: 042
     Dates: start: 20081001, end: 20081022
  2. CETUXIMAB [Suspect]
     Dosage: 400/250 MG/M2 Q 21 DAYSD1/D8D15 IV
     Route: 042
     Dates: start: 20081008, end: 20081015
  3. CETUXIMAB [Suspect]
     Dosage: 400/250 MG/M2 Q 21 DAYSD1/D8D15 IV
     Route: 042
     Dates: start: 20081001, end: 20081022
  4. CETUXIMAB [Suspect]
     Dosage: 400/250 MG/M2 Q 21 DAYSD1/D8D15 IV
     Route: 042
     Dates: start: 20081030, end: 20081106

REACTIONS (7)
  - ABDOMINAL PAIN [None]
  - COLITIS [None]
  - DEPRESSED MOOD [None]
  - METASTASES TO PERITONEUM [None]
  - NAUSEA [None]
  - SINUS TACHYCARDIA [None]
  - VOMITING [None]
